FAERS Safety Report 23042693 (Version 3)
Quarter: 2024Q2

REPORT INFORMATION
  Report Type: Report from Study
  Country: CA (occurrence: CA)
  Receive Date: 20231009
  Receipt Date: 20240424
  Transmission Date: 20240715
  Serious: Yes (Other)
  Sender: FDA-Public Use
  Company Number: CA-AMGEN-CANSL2023175321

PATIENT
  Age: 27 Year
  Sex: Female

DRUGS (3)
  1. AVSOLA [Suspect]
     Active Substance: INFLIXIMAB-AXXQ
     Indication: Rheumatoid arthritis
     Dosage: 4 MILLIGRAM/KILOGRAM, Q8WK
     Route: 065
     Dates: start: 20220406
  2. AVSOLA [Suspect]
     Active Substance: INFLIXIMAB-AXXQ
     Dosage: 5 MILLIGRAM/KILOGRAM, Q8WK
     Route: 065
  3. AVSOLA [Suspect]
     Active Substance: INFLIXIMAB-AXXQ
     Dosage: 5 MILLIGRAM/KILOGRAM, Q8WK
     Route: 065

REACTIONS (7)
  - Rheumatoid arthritis [Unknown]
  - Anal abscess [Unknown]
  - Seizure [Unknown]
  - Arthralgia [Unknown]
  - Costochondritis [Recovered/Resolved]
  - Vasculitis [Recovered/Resolved]
  - Anaemia [Unknown]

NARRATIVE: CASE EVENT DATE: 20230901
